FAERS Safety Report 10251605 (Version 1)
Quarter: 2014Q2

REPORT INFORMATION
  Report Type: Spontaneous
  Country: US (occurrence: US)
  Receive Date: 20140623
  Receipt Date: 20140623
  Transmission Date: 20141212
  Serious: Yes (Other)
  Sender: FDA-Public Use
  Company Number: US-BEH-2014043234

PATIENT
  Age: 60 Year
  Sex: Female

DRUGS (1)
  1. BERINERT [Suspect]
     Indication: HEREDITARY ANGIOEDEMA
     Route: 042
     Dates: start: 20140313

REACTIONS (2)
  - Drug ineffective for unapproved indication [Unknown]
  - Drug ineffective for unapproved indication [Unknown]
